FAERS Safety Report 22019185 (Version 10)
Quarter: 2025Q1

REPORT INFORMATION
  Report Type: Spontaneous
  Country: CA (occurrence: CA)
  Receive Date: 20230222
  Receipt Date: 20250210
  Transmission Date: 20250409
  Serious: Yes (Other)
  Sender: AUROBINDO
  Company Number: CA-AUROBINDO-AUR-APL-2020-034096

PATIENT
  Age: 41 Year
  Sex: Female

DRUGS (258)
  1. AMOXICILLIN [Suspect]
     Active Substance: AMOXICILLIN
     Indication: Product used for unknown indication
     Dosage: 2 DOSAGE FORM, 3 TIMES A DAY
     Route: 065
  2. AMOXICILLIN [Suspect]
     Active Substance: AMOXICILLIN
     Route: 065
  3. AZITHROMYCIN [Suspect]
     Active Substance: AZITHROMYCIN
     Indication: Migraine
     Dosage: 500 MILLIGRAM, ONCE A DAY
     Route: 065
  4. CIPROFLOXACIN [Suspect]
     Active Substance: CIPROFLOXACIN
     Indication: Migraine
     Dosage: 1 DOSAGE FORM, TWO TIMES A DAY
     Route: 065
  5. CIPROFLOXACIN [Suspect]
     Active Substance: CIPROFLOXACIN
     Route: 065
  6. DULOXETINE [Suspect]
     Active Substance: DULOXETINE
     Indication: Migraine
     Route: 065
  7. ESCITALOPRAM [Suspect]
     Active Substance: ESCITALOPRAM OXALATE
     Indication: Migraine
     Route: 065
  8. INDOMETHACIN [Suspect]
     Active Substance: INDOMETHACIN
     Indication: Migraine
     Dosage: 1 DOSAGE FORM, TWO TIMES A DAY
     Route: 054
  9. LISINOPRIL [Suspect]
     Active Substance: LISINOPRIL
     Indication: Migraine
     Dosage: 1 DOSAGE FORM, ONCE A DAY
     Route: 065
  10. LISINOPRIL [Suspect]
     Active Substance: LISINOPRIL
     Dosage: 1 DOSAGE FORM, ONCE A DAY
     Route: 065
  11. LISINOPRIL [Suspect]
     Active Substance: LISINOPRIL
     Route: 065
  12. RIZATRIPTAN [Suspect]
     Active Substance: RIZATRIPTAN
     Indication: Migraine
     Dosage: 10 MILLIGRAM, ONCE A DAY
     Route: 065
  13. RIZATRIPTAN [Suspect]
     Active Substance: RIZATRIPTAN
     Dosage: 1 DOSAGE FORM, ONCE A DAY
     Route: 065
  14. SERTRALINE [Suspect]
     Active Substance: SERTRALINE HYDROCHLORIDE
     Indication: Migraine
     Route: 065
  15. TOPIRAMATE [Suspect]
     Active Substance: TOPIRAMATE
     Indication: Migraine
     Route: 065
  16. TOPIRAMATE [Suspect]
     Active Substance: TOPIRAMATE
     Route: 065
  17. VENLAFAXINE [Suspect]
     Active Substance: VENLAFAXINE HYDROCHLORIDE
     Indication: Migraine
     Route: 065
  18. VENLAFAXINE [Suspect]
     Active Substance: VENLAFAXINE HYDROCHLORIDE
     Route: 065
  19. ZOLMITRIPTAN [Suspect]
     Active Substance: ZOLMITRIPTAN
     Indication: Product used for unknown indication
     Dosage: 1 DOSAGE FORM, ONCE A DAY
     Route: 065
  20. ZOLMITRIPTAN [Suspect]
     Active Substance: ZOLMITRIPTAN
     Dosage: 10 MILLIGRAM, ONCE A DAY
     Route: 065
  21. TRAMADOL HYDROCHLORIDE [Suspect]
     Active Substance: TRAMADOL HYDROCHLORIDE
     Indication: Product used for unknown indication
     Route: 065
  22. ACETAMINOPHEN [Suspect]
     Active Substance: ACETAMINOPHEN
     Indication: Migraine
     Route: 065
  23. AZITHROMYCIN [Suspect]
     Active Substance: AZITHROMYCIN
     Indication: Migraine
     Route: 065
  24. BOTULINUM TOXIN TYPE A [Suspect]
     Active Substance: BOTULINUM TOXIN TYPE A
     Indication: Product used for unknown indication
     Route: 065
  25. BOTULINUM TOXIN TYPE A [Suspect]
     Active Substance: BOTULINUM TOXIN TYPE A
     Route: 065
  26. CLARITHROMYCIN [Suspect]
     Active Substance: CLARITHROMYCIN
     Indication: Product used for unknown indication
     Dosage: 1 DOSAGE FORM, TWO TIMES A DAY
     Route: 065
  27. CLARITHROMYCIN [Suspect]
     Active Substance: CLARITHROMYCIN
     Dosage: 1 DOSAGE FORM, ONCE A DAY
     Route: 065
  28. CODEINE [Suspect]
     Active Substance: CODEINE
     Indication: Migraine
     Route: 065
  29. DEXAMETHASONE [Suspect]
     Active Substance: DEXAMETHASONE
     Indication: Migraine
     Dosage: 1 DOSAGE FORM, ONCE A DAY
     Route: 065
  30. DEXAMETHASONE [Suspect]
     Active Substance: DEXAMETHASONE
     Dosage: 1 DOSAGE FORM, EVERY OTHER DAY
     Route: 065
  31. DEXAMETHASONE [Suspect]
     Active Substance: DEXAMETHASONE
     Dosage: 2 DOSAGE FORM, EVERY OTHER DAY
     Route: 065
  32. DEXAMETHASONE [Suspect]
     Active Substance: DEXAMETHASONE
     Dosage: 2 MILLIGRAM, ONCE A DAY
     Route: 065
  33. ESOMEPRAZOLE MAGNESIUM [Suspect]
     Active Substance: ESOMEPRAZOLE MAGNESIUM
     Indication: Migraine
     Route: 048
  34. FLUCONAZOLE [Suspect]
     Active Substance: FLUCONAZOLE
     Indication: Migraine
     Route: 065
  35. FLUCONAZOLE [Suspect]
     Active Substance: FLUCONAZOLE
     Route: 065
  36. HYDROMORPHONE HCL [Suspect]
     Active Substance: HYDROMORPHONE HYDROCHLORIDE
     Indication: Migraine
     Dosage: 1 DOSAGE FORM, TWO TIMES A DAY
     Route: 065
  37. HYDROMORPHONE HCL [Suspect]
     Active Substance: HYDROMORPHONE HYDROCHLORIDE
     Dosage: 1 DOSAGE FORM, TWO TIMES A DAY
     Route: 065
  38. HYDROMORPHONE HCL [Suspect]
     Active Substance: HYDROMORPHONE HYDROCHLORIDE
     Dosage: 1 DOSAGE FORM, TWO TIMES A DAY
     Route: 065
  39. HYDROMORPHONE HCL [Suspect]
     Active Substance: HYDROMORPHONE HYDROCHLORIDE
     Dosage: 1 DOSAGE FORM, TWO TIMES A DAY
     Route: 065
  40. HYDROMORPHONE HCL [Suspect]
     Active Substance: HYDROMORPHONE HYDROCHLORIDE
     Dosage: 1 DOSAGE FORM, TWO TIMES A DAY
     Route: 065
  41. HYDROMORPHONE HCL [Suspect]
     Active Substance: HYDROMORPHONE HYDROCHLORIDE
     Dosage: 1 DOSAGE FORM, TWO TIMES A DAY
     Route: 065
  42. HYDROMORPHONE HCL [Suspect]
     Active Substance: HYDROMORPHONE HYDROCHLORIDE
     Dosage: 1 DOSAGE FORM, TWO TIMES A DAY
     Route: 065
  43. HYDROMORPHONE HCL [Suspect]
     Active Substance: HYDROMORPHONE HYDROCHLORIDE
     Dosage: 1 DOSAGE FORM, TWO TIMES A DAY
     Route: 065
  44. HYDROMORPHONE HCL [Suspect]
     Active Substance: HYDROMORPHONE HYDROCHLORIDE
     Dosage: 1 DOSAGE FORM, TWO TIMES A DAY
     Route: 065
  45. HYDROMORPHONE HCL [Suspect]
     Active Substance: HYDROMORPHONE HYDROCHLORIDE
     Dosage: 1 DOSAGE FORM, TWO TIMES A DAY
     Route: 065
  46. HYDROMORPHONE HCL [Suspect]
     Active Substance: HYDROMORPHONE HYDROCHLORIDE
     Dosage: 1 DOSAGE FORM, TWO TIMES A DAY
     Route: 065
  47. HYDROMORPHONE HCL [Suspect]
     Active Substance: HYDROMORPHONE HYDROCHLORIDE
     Dosage: 1 DOSAGE FORM, TWO TIMES A DAY
     Route: 065
  48. HYDROMORPHONE HCL [Suspect]
     Active Substance: HYDROMORPHONE HYDROCHLORIDE
     Dosage: 1 DOSAGE FORM, TWO TIMES A DAY
     Route: 065
  49. HYDROMORPHONE HCL [Suspect]
     Active Substance: HYDROMORPHONE HYDROCHLORIDE
     Dosage: 1 DOSAGE FORM, TWO TIMES A DAY
     Route: 065
  50. BUTYLSCOPOLAMINE BROMIDE [Suspect]
     Active Substance: BUTYLSCOPOLAMINE BROMIDE
     Indication: Migraine
     Route: 065
  51. INDOMETHACIN [Suspect]
     Active Substance: INDOMETHACIN
     Indication: Migraine
     Dosage: 1 DOSAGE FORM, TWO TIMES A DAY
     Route: 054
  52. INDOMETHACIN [Suspect]
     Active Substance: INDOMETHACIN
     Dosage: 1 DOSAGE FORM, TWO TIMES A DAY
     Route: 054
  53. INDOMETHACIN [Suspect]
     Active Substance: INDOMETHACIN
     Dosage: 1 DOSAGE FORM, TWO TIMES A DAY
     Route: 054
  54. INDOMETHACIN [Suspect]
     Active Substance: INDOMETHACIN
     Dosage: 1 DOSAGE FORM, TWO TIMES A DAY
     Route: 054
  55. INDOMETHACIN [Suspect]
     Active Substance: INDOMETHACIN
     Dosage: 1 DOSAGE FORM, TWO TIMES A DAY
     Route: 054
  56. INDOMETHACIN [Suspect]
     Active Substance: INDOMETHACIN
     Dosage: 1 DOSAGE FORM, TWO TIMES A DAY
     Route: 054
  57. INDOMETHACIN [Suspect]
     Active Substance: INDOMETHACIN
     Dosage: 1 DOSAGE FORM, TWO TIMES A DAY
     Route: 054
  58. INDOMETHACIN [Suspect]
     Active Substance: INDOMETHACIN
     Dosage: 1 DOSAGE FORM, TWO TIMES A DAY
     Route: 054
  59. INDOMETHACIN [Suspect]
     Active Substance: INDOMETHACIN
     Dosage: 1 DOSAGE FORM, TWO TIMES A DAY
     Route: 054
  60. INDOMETHACIN [Suspect]
     Active Substance: INDOMETHACIN
     Dosage: 1 DOSAGE FORM, TWO TIMES A DAY
     Route: 054
  61. INDOMETHACIN [Suspect]
     Active Substance: INDOMETHACIN
     Dosage: 1 DOSAGE FORM, TWO TIMES A DAY
     Route: 054
  62. INDOMETHACIN [Suspect]
     Active Substance: INDOMETHACIN
     Dosage: 1 DOSAGE FORM, TWO TIMES A DAY
     Route: 054
  63. INDOMETHACIN [Suspect]
     Active Substance: INDOMETHACIN
     Dosage: 1 DOSAGE FORM, TWO TIMES A DAY
     Route: 054
  64. LANSOPRAZOLE [Suspect]
     Active Substance: LANSOPRAZOLE
     Indication: Migraine
     Route: 065
  65. LANSOPRAZOLE [Suspect]
     Active Substance: LANSOPRAZOLE
     Indication: Migraine
     Route: 065
  66. MAXALT [Suspect]
     Active Substance: RIZATRIPTAN BENZOATE
     Indication: Product used for unknown indication
     Route: 065
  67. METOCLOPRAMIDE [Suspect]
     Active Substance: METOCLOPRAMIDE
     Indication: Migraine
     Route: 065
  68. METOCLOPRAMIDE [Suspect]
     Active Substance: METOCLOPRAMIDE
     Route: 065
  69. MOMETASONE FUROATE [Suspect]
     Active Substance: MOMETASONE FUROATE
     Indication: Migraine
     Dosage: 2 DOSAGE FORM, TWO TIMES A DAY
     Route: 045
  70. MOMETASONE FUROATE [Suspect]
     Active Substance: MOMETASONE FUROATE
     Dosage: 2 DOSAGE FORM, TWO TIMES A DAY
  71. MOMETASONE FUROATE [Suspect]
     Active Substance: MOMETASONE FUROATE
     Dosage: 2 DOSAGE FORM, 3 TIMES A DAY
     Route: 065
  72. PROPRANOLOL HYDROCHLORIDE [Suspect]
     Active Substance: PROPRANOLOL HYDROCHLORIDE
     Indication: Migraine
     Route: 065
  73. PROPRANOLOL HYDROCHLORIDE [Suspect]
     Active Substance: PROPRANOLOL HYDROCHLORIDE
     Route: 065
  74. PROPRANOLOL HYDROCHLORIDE [Suspect]
     Active Substance: PROPRANOLOL HYDROCHLORIDE
     Route: 065
  75. RABEPRAZOLE SODIUM [Suspect]
     Active Substance: RABEPRAZOLE SODIUM
     Indication: Migraine
     Dosage: 1 DOSAGE FORM, TWO TIMES A DAY
     Route: 048
  76. RABEPRAZOLE SODIUM [Suspect]
     Active Substance: RABEPRAZOLE SODIUM
     Dosage: 1 DOSAGE FORM, TWO TIMES A DAY
     Route: 048
  77. RABEPRAZOLE SODIUM [Suspect]
     Active Substance: RABEPRAZOLE SODIUM
     Dosage: 1 DOSAGE FORM, TWO TIMES A DAY
     Route: 048
  78. RABEPRAZOLE SODIUM [Suspect]
     Active Substance: RABEPRAZOLE SODIUM
     Dosage: 1 DOSAGE FORM, TWO TIMES A DAY
     Route: 048
  79. RABEPRAZOLE SODIUM [Suspect]
     Active Substance: RABEPRAZOLE SODIUM
     Dosage: 1 DOSAGE FORM, TWO TIMES A DAY
     Route: 048
  80. RABEPRAZOLE SODIUM [Suspect]
     Active Substance: RABEPRAZOLE SODIUM
     Dosage: 1 DOSAGE FORM, TWO TIMES A DAY
     Route: 048
  81. RABEPRAZOLE SODIUM [Suspect]
     Active Substance: RABEPRAZOLE SODIUM
     Dosage: 1 DOSAGE FORM, TWO TIMES A DAY
     Route: 048
  82. RABEPRAZOLE SODIUM [Suspect]
     Active Substance: RABEPRAZOLE SODIUM
     Dosage: 1 DOSAGE FORM, TWO TIMES A DAY
     Route: 048
  83. RABEPRAZOLE SODIUM [Suspect]
     Active Substance: RABEPRAZOLE SODIUM
     Dosage: 1 DOSAGE FORM, TWO TIMES A DAY
     Route: 048
  84. RABEPRAZOLE SODIUM [Suspect]
     Active Substance: RABEPRAZOLE SODIUM
     Dosage: 1 DOSAGE FORM, TWO TIMES A DAY
     Route: 048
  85. RABEPRAZOLE SODIUM [Suspect]
     Active Substance: RABEPRAZOLE SODIUM
     Dosage: 1 DOSAGE FORM, TWO TIMES A DAY
     Route: 048
  86. RABEPRAZOLE SODIUM [Suspect]
     Active Substance: RABEPRAZOLE SODIUM
     Dosage: 1 DOSAGE FORM, TWO TIMES A DAY
     Route: 048
  87. RABEPRAZOLE SODIUM [Suspect]
     Active Substance: RABEPRAZOLE SODIUM
     Dosage: 1 DOSAGE FORM, TWO TIMES A DAY
     Route: 048
  88. RABEPRAZOLE SODIUM [Suspect]
     Active Substance: RABEPRAZOLE SODIUM
     Dosage: 1 DOSAGE FORM, TWO TIMES A DAY
     Route: 048
  89. RABEPRAZOLE SODIUM [Suspect]
     Active Substance: RABEPRAZOLE SODIUM
     Dosage: 1 DOSAGE FORM, TWO TIMES A DAY
     Route: 048
  90. RABEPRAZOLE SODIUM [Suspect]
     Active Substance: RABEPRAZOLE SODIUM
     Dosage: 1 DOSAGE FORM, TWO TIMES A DAY
     Route: 048
  91. RABEPRAZOLE SODIUM [Suspect]
     Active Substance: RABEPRAZOLE SODIUM
     Route: 065
  92. ALBUTEROL [Suspect]
     Active Substance: ALBUTEROL
     Indication: Product used for unknown indication
     Route: 065
  93. ALBUTEROL [Suspect]
     Active Substance: ALBUTEROL
     Dosage: 1 DOSAGE FORM, ONCE A DAY
     Route: 065
  94. SUMATRIPTAN [Suspect]
     Active Substance: SUMATRIPTAN
     Indication: Migraine
     Route: 065
  95. SUMATRIPTAN [Suspect]
     Active Substance: SUMATRIPTAN
     Route: 065
  96. TRIMETHOPRIM [Suspect]
     Active Substance: TRIMETHOPRIM
     Indication: Migraine
     Route: 065
  97. TRIMETHOPRIM [Suspect]
     Active Substance: TRIMETHOPRIM
     Dosage: 2 DOSAGE FORM, 3 TIMES A DAY
     Route: 065
  98. DULOXETINE [Suspect]
     Active Substance: DULOXETINE
     Indication: Migraine
  99. FLUTICASONE FUROATE\UMECLIDINIUM BROMIDE\VILANTEROL TRIFENATATE [Suspect]
     Active Substance: FLUTICASONE FUROATE\UMECLIDINIUM BROMIDE\VILANTEROL TRIFENATATE
     Indication: Product used for unknown indication
     Route: 065
  100. DULOXETINE [Suspect]
     Active Substance: DULOXETINE
     Indication: Migraine
     Route: 065
  101. CLOTRIMAZOLE [Suspect]
     Active Substance: CLOTRIMAZOLE
     Indication: Product used for unknown indication
     Route: 065
  102. ZOPICLONE [Suspect]
     Active Substance: ZOPICLONE
     Indication: Migraine
     Dosage: 1 DOSAGE FORM, ONCE A DAY
     Route: 065
  103. ZOPICLONE [Suspect]
     Active Substance: ZOPICLONE
     Dosage: 1 DOSAGE FORM, ONCE A DAY
     Route: 065
  104. ZOPICLONE [Suspect]
     Active Substance: ZOPICLONE
     Dosage: 1 DOSAGE FORM, ONCE A DAY
     Route: 065
  105. ZOPICLONE [Suspect]
     Active Substance: ZOPICLONE
     Dosage: 1 DOSAGE FORM, ONCE A DAY
     Route: 065
  106. ZOPICLONE [Suspect]
     Active Substance: ZOPICLONE
     Dosage: 1 DOSAGE FORM, ONCE A DAY
     Route: 065
  107. ZOPICLONE [Suspect]
     Active Substance: ZOPICLONE
     Dosage: 1 DOSAGE FORM, ONCE A DAY
     Route: 065
  108. ZOPICLONE [Suspect]
     Active Substance: ZOPICLONE
     Dosage: 1 DOSAGE FORM, ONCE A DAY
     Route: 065
  109. ZOPICLONE [Suspect]
     Active Substance: ZOPICLONE
     Dosage: 1 DOSAGE FORM, ONCE A DAY
     Route: 065
  110. ZOPICLONE [Suspect]
     Active Substance: ZOPICLONE
     Dosage: 1 DOSAGE FORM, ONCE A DAY
     Route: 065
  111. ZOPICLONE [Suspect]
     Active Substance: ZOPICLONE
     Dosage: 1 DOSAGE FORM, ONCE A DAY
     Route: 065
  112. ZOPICLONE [Suspect]
     Active Substance: ZOPICLONE
     Dosage: 1 DOSAGE FORM, ONCE A DAY
     Route: 065
  113. ZOPICLONE [Suspect]
     Active Substance: ZOPICLONE
     Dosage: 1 DOSAGE FORM, ONCE A DAY
     Route: 065
  114. ZOPICLONE [Suspect]
     Active Substance: ZOPICLONE
     Dosage: 1 DOSAGE FORM, ONCE A DAY
     Route: 065
  115. ZOPICLONE [Suspect]
     Active Substance: ZOPICLONE
     Dosage: 1 DOSAGE FORM, ONCE A DAY
     Route: 065
  116. ZOPICLONE [Suspect]
     Active Substance: ZOPICLONE
     Dosage: 1 DOSAGE FORM, ONCE A DAY
     Route: 065
  117. ZOPICLONE [Suspect]
     Active Substance: ZOPICLONE
     Dosage: 1 DOSAGE FORM, ONCE A DAY
     Route: 065
  118. ZOPICLONE [Suspect]
     Active Substance: ZOPICLONE
     Dosage: 1 DOSAGE FORM, ONCE A DAY
     Route: 065
  119. ZOPICLONE [Suspect]
     Active Substance: ZOPICLONE
     Dosage: 1 DOSAGE FORM, ONCE A DAY
     Route: 065
  120. ZOPICLONE [Suspect]
     Active Substance: ZOPICLONE
     Dosage: 1 DOSAGE FORM, ONCE A DAY
     Route: 065
  121. ZOPICLONE [Suspect]
     Active Substance: ZOPICLONE
     Dosage: 1 DOSAGE FORM, ONCE A DAY
     Route: 065
  122. ZOPICLONE [Suspect]
     Active Substance: ZOPICLONE
     Dosage: 1 DOSAGE FORM, ONCE A DAY
     Route: 065
  123. ZOPICLONE [Suspect]
     Active Substance: ZOPICLONE
     Dosage: 1 DOSAGE FORM, ONCE A DAY
     Route: 065
  124. ZOPICLONE [Suspect]
     Active Substance: ZOPICLONE
     Dosage: 1 DOSAGE FORM, ONCE A DAY
     Route: 065
  125. ZOPICLONE [Suspect]
     Active Substance: ZOPICLONE
     Dosage: 1 DOSAGE FORM, ONCE A DAY
     Route: 065
  126. ZOPICLONE [Suspect]
     Active Substance: ZOPICLONE
     Dosage: 1 DOSAGE FORM, ONCE A DAY
     Route: 065
  127. ZOPICLONE [Suspect]
     Active Substance: ZOPICLONE
     Route: 065
  128. ACETAMINOPHEN AND CAFFEINE [Concomitant]
     Active Substance: ACETAMINOPHEN\CAFFEINE
     Indication: Product used for unknown indication
     Dosage: UNK UNK, FOUR TIMES/DAY
     Route: 065
  129. ACETAMINOPHEN AND CAFFEINE [Concomitant]
     Active Substance: ACETAMINOPHEN\CAFFEINE
     Route: 065
  130. ACETAMINOPHEN AND CAFFEINE [Concomitant]
     Active Substance: ACETAMINOPHEN\CAFFEINE
     Dosage: UNK UNK, FOUR TIMES/DAY
     Route: 065
  131. ALLOPURINOL [Concomitant]
     Active Substance: ALLOPURINOL
     Indication: Product used for unknown indication
     Route: 065
  132. AMOXICILLIN TRIHYDRATE [Concomitant]
     Active Substance: AMOXICILLIN
     Indication: Product used for unknown indication
     Dosage: 2 DOSAGE FORM, 3 TIMES A DAY
     Route: 065
  133. AMOXICILLIN\CLARITHROMYCIN\ESOMEPRAZOLE [Concomitant]
     Active Substance: AMOXICILLIN\CLARITHROMYCIN\ESOMEPRAZOLE
     Indication: Product used for unknown indication
     Route: 065
  134. LISINOPRIL [Concomitant]
     Active Substance: LISINOPRIL
     Indication: Product used for unknown indication
     Dosage: 2 DOSAGE FORM, ONCE A DAY
     Route: 065
  135. LISINOPRIL [Concomitant]
     Active Substance: LISINOPRIL
     Dosage: 1 DOSAGE FORM, ONCE A DAY
     Route: 065
  136. PREDNISONE [Concomitant]
     Active Substance: PREDNISONE
     Indication: Product used for unknown indication
     Dosage: 2 DOSAGE FORM, ONCE A DAY
     Route: 065
  137. APO-SALVENT CFC FREE [Concomitant]
     Indication: Product used for unknown indication
     Dosage: 1 DOSAGE FORM, FOUR TIMES/DAY
     Route: 065
  138. ALBUTEROL SULFATE [Concomitant]
     Active Substance: ALBUTEROL SULFATE
     Indication: Product used for unknown indication
     Dosage: 1 DOSAGE FORM, FOUR TIMES/DAY
     Route: 065
  139. AZITHROMYCIN DIHYDRATE [Concomitant]
     Active Substance: AZITHROMYCIN DIHYDRATE
     Indication: Product used for unknown indication
     Route: 065
  140. CYMBALTA [Concomitant]
     Active Substance: DULOXETINE HYDROCHLORIDE
     Indication: Product used for unknown indication
     Dosage: 1 DOSAGE FORM, ONCE A DAY
     Route: 065
  141. CYMBALTA [Concomitant]
     Active Substance: DULOXETINE HYDROCHLORIDE
     Dosage: 1 DOSAGE FORM, ONCE A DAY
     Route: 065
  142. CYMBALTA [Concomitant]
     Active Substance: DULOXETINE HYDROCHLORIDE
     Dosage: 1 DOSAGE FORM, ONCE A DAY
     Route: 065
  143. CYMBALTA [Concomitant]
     Active Substance: DULOXETINE HYDROCHLORIDE
     Dosage: 1 DOSAGE FORM, ONCE A DAY
     Route: 065
  144. CYMBALTA [Concomitant]
     Active Substance: DULOXETINE HYDROCHLORIDE
     Dosage: 1 DOSAGE FORM, ONCE A DAY
     Route: 065
  145. CYMBALTA [Concomitant]
     Active Substance: DULOXETINE HYDROCHLORIDE
     Dosage: 1 DOSAGE FORM, ONCE A DAY
     Route: 065
  146. CYMBALTA [Concomitant]
     Active Substance: DULOXETINE HYDROCHLORIDE
     Dosage: 1 DOSAGE FORM, ONCE A DAY
     Route: 065
  147. CYMBALTA [Concomitant]
     Active Substance: DULOXETINE HYDROCHLORIDE
     Dosage: 1 DOSAGE FORM, ONCE A DAY
     Route: 065
  148. CYMBALTA [Concomitant]
     Active Substance: DULOXETINE HYDROCHLORIDE
     Dosage: 1 DOSAGE FORM, ONCE A DAY
     Route: 065
  149. CYMBALTA [Concomitant]
     Active Substance: DULOXETINE HYDROCHLORIDE
     Dosage: 1 DOSAGE FORM, ONCE A DAY
     Route: 065
  150. CYMBALTA [Concomitant]
     Active Substance: DULOXETINE HYDROCHLORIDE
     Dosage: 1 DOSAGE FORM, ONCE A DAY
     Route: 065
  151. CYMBALTA [Concomitant]
     Active Substance: DULOXETINE HYDROCHLORIDE
     Dosage: 1 DOSAGE FORM, ONCE A DAY
     Route: 065
  152. CYMBALTA [Concomitant]
     Active Substance: DULOXETINE HYDROCHLORIDE
     Dosage: 1 DOSAGE FORM, ONCE A DAY
     Route: 065
  153. CYMBALTA [Concomitant]
     Active Substance: DULOXETINE HYDROCHLORIDE
     Dosage: 1 DOSAGE FORM, ONCE A DAY
     Route: 065
  154. CYMBALTA [Concomitant]
     Active Substance: DULOXETINE HYDROCHLORIDE
     Dosage: 1 DOSAGE FORM, ONCE A DAY
     Route: 065
  155. CYMBALTA [Concomitant]
     Active Substance: DULOXETINE HYDROCHLORIDE
     Indication: Product used for unknown indication
     Dosage: 1 DOSAGE FORM, ONCE A DAY
     Route: 065
  156. CYMBALTA [Concomitant]
     Active Substance: DULOXETINE HYDROCHLORIDE
     Dosage: 1 DOSAGE FORM, ONCE A DAY
     Route: 065
  157. CYMBALTA [Concomitant]
     Active Substance: DULOXETINE HYDROCHLORIDE
     Dosage: 1 DOSAGE FORM, ONCE A DAY
     Route: 065
  158. CYMBALTA [Concomitant]
     Active Substance: DULOXETINE HYDROCHLORIDE
     Dosage: 1 DOSAGE FORM, ONCE A DAY
     Route: 065
  159. CYMBALTA [Concomitant]
     Active Substance: DULOXETINE HYDROCHLORIDE
     Dosage: 1 DOSAGE FORM, ONCE A DAY
     Route: 065
  160. CYMBALTA [Concomitant]
     Active Substance: DULOXETINE HYDROCHLORIDE
     Dosage: 1 DOSAGE FORM, ONCE A DAY
     Route: 065
  161. CYMBALTA [Concomitant]
     Active Substance: DULOXETINE HYDROCHLORIDE
     Dosage: 1 DOSAGE FORM, ONCE A DAY
     Route: 065
  162. CYMBALTA [Concomitant]
     Active Substance: DULOXETINE HYDROCHLORIDE
     Dosage: 1 DOSAGE FORM, ONCE A DAY
     Route: 065
  163. CYMBALTA [Concomitant]
     Active Substance: DULOXETINE HYDROCHLORIDE
     Dosage: 1 DOSAGE FORM, ONCE A DAY
     Route: 065
  164. CYMBALTA [Concomitant]
     Active Substance: DULOXETINE HYDROCHLORIDE
     Dosage: 1 DOSAGE FORM, ONCE A DAY
     Route: 065
  165. CYMBALTA [Concomitant]
     Active Substance: DULOXETINE HYDROCHLORIDE
     Dosage: 1 DOSAGE FORM, ONCE A DAY
     Route: 065
  166. CYMBALTA [Concomitant]
     Active Substance: DULOXETINE HYDROCHLORIDE
     Dosage: 1 DOSAGE FORM, ONCE A DAY
     Route: 065
  167. CYMBALTA [Concomitant]
     Active Substance: DULOXETINE HYDROCHLORIDE
     Dosage: 1 DOSAGE FORM, ONCE A DAY
     Route: 065
  168. CYMBALTA [Concomitant]
     Active Substance: DULOXETINE HYDROCHLORIDE
     Dosage: 1 DOSAGE FORM, ONCE A DAY
     Route: 065
  169. CYMBALTA [Concomitant]
     Active Substance: DULOXETINE HYDROCHLORIDE
     Dosage: 1 DOSAGE FORM, ONCE A DAY
     Route: 065
  170. CYMBALTA [Concomitant]
     Active Substance: DULOXETINE HYDROCHLORIDE
     Dosage: 1 DOSAGE FORM, ONCE A DAY
     Route: 065
  171. CYMBALTA [Concomitant]
     Active Substance: DULOXETINE HYDROCHLORIDE
     Dosage: 1 DOSAGE FORM, TWO TIMES A DAY
     Route: 065
  172. CYMBALTA [Concomitant]
     Active Substance: DULOXETINE HYDROCHLORIDE
     Dosage: 2 DOSAGE FORM, ONCE A DAY
     Route: 065
  173. CEFUROXIME AXETIL [Concomitant]
     Active Substance: CEFUROXIME AXETIL
     Indication: Product used for unknown indication
     Dosage: 1 DOSAGE FORM, TWO TIMES A DAY
     Route: 065
  174. CEFUROXIME AXETIL [Concomitant]
     Active Substance: CEFUROXIME AXETIL
     Indication: Product used for unknown indication
     Dosage: 1 DOSAGE FORM, TWO TIMES A DAY
     Route: 065
  175. CEFUROXIME AXETIL [Concomitant]
     Active Substance: CEFUROXIME AXETIL
     Dosage: 1 DOSAGE FORM, TWO TIMES A DAY
     Route: 065
  176. CEPHALEXIN [Concomitant]
     Active Substance: CEPHALEXIN
     Indication: Product used for unknown indication
     Dosage: 1 DOSAGE FORM, 3 TIMES A DAY
     Route: 065
  177. DANAZOL [Concomitant]
     Active Substance: DANAZOL
     Indication: Product used for unknown indication
     Dosage: 1 DOSAGE FORM, TWO TIMES A DAY
     Route: 065
  178. DANAZOL [Concomitant]
     Active Substance: DANAZOL
     Dosage: 1 DOSAGE FORM, EVERY OTHER DAY
     Route: 065
  179. ELAVIL [Concomitant]
     Active Substance: AMITRIPTYLINE HYDROCHLORIDE
     Indication: Product used for unknown indication
     Route: 065
  180. FLUTICASONE [Concomitant]
     Active Substance: FLUTICASONE
     Indication: Product used for unknown indication
     Dosage: 2 DOSAGE FORM, TWO TIMES A DAY
     Route: 045
  181. FLUTICASONE [Concomitant]
     Active Substance: FLUTICASONE
     Dosage: 2 DOSAGE FORM, TWO TIMES A DAY
     Route: 045
  182. FLUTICASONE [Concomitant]
     Active Substance: FLUTICASONE
     Dosage: 2 DOSAGE FORM, EVERY OTHER DAY
     Route: 065
  183. FROVA [Concomitant]
     Active Substance: FROVATRIPTAN SUCCINATE
     Indication: Product used for unknown indication
     Dosage: 1 DOSAGE FORM, ONCE A DAY
     Route: 065
  184. FERROUS FUMARATE [Concomitant]
     Active Substance: FERROUS FUMARATE
     Indication: Product used for unknown indication
     Route: 065
  185. FLUOXETINE [Concomitant]
     Active Substance: FLUOXETINE HYDROCHLORIDE
     Indication: Product used for unknown indication
     Route: 065
  186. FLUOXETINE [Concomitant]
     Active Substance: FLUOXETINE HYDROCHLORIDE
     Dosage: 2 DOSAGE FORM, TWO TIMES A DAY
     Route: 065
  187. ACETAMINOPHEN\CAFFEINE\CODEINE [Concomitant]
     Active Substance: ACETAMINOPHEN\CAFFEINE\CODEINE
     Indication: Product used for unknown indication
     Dosage: UNK UNK, FOUR TIMES/DAY
     Route: 065
  188. ACETAMINOPHEN\CAFFEINE\CODEINE [Concomitant]
     Active Substance: ACETAMINOPHEN\CAFFEINE\CODEINE
     Dosage: UNK, FOUR TIMES/DAY
     Route: 065
  189. ACETAMINOPHEN\CAFFEINE\CODEINE [Concomitant]
     Active Substance: ACETAMINOPHEN\CAFFEINE\CODEINE
     Dosage: UNK UNK, FOUR TIMES/DAY
     Route: 065
  190. ACETAMINOPHEN\CAFFEINE\CODEINE [Concomitant]
     Active Substance: ACETAMINOPHEN\CAFFEINE\CODEINE
     Dosage: UNK UNK, FOUR TIMES/DAY
     Route: 065
  191. ACETAMINOPHEN\CAFFEINE\CODEINE [Concomitant]
     Active Substance: ACETAMINOPHEN\CAFFEINE\CODEINE
     Dosage: UNK UNK, FOUR TIMES/DAY
     Route: 065
  192. ACETAMINOPHEN\CAFFEINE\CODEINE [Concomitant]
     Active Substance: ACETAMINOPHEN\CAFFEINE\CODEINE
     Dosage: UNK UNK, FOUR TIMES/DAY
     Route: 065
  193. ACETAMINOPHEN\CAFFEINE\CODEINE [Concomitant]
     Active Substance: ACETAMINOPHEN\CAFFEINE\CODEINE
     Dosage: UNK UNK, FOUR TIMES/DAY
     Route: 065
  194. ACETAMINOPHEN\CAFFEINE\CODEINE [Concomitant]
     Active Substance: ACETAMINOPHEN\CAFFEINE\CODEINE
     Dosage: UNK UNK, FOUR TIMES/DAY
     Route: 065
  195. ACETAMINOPHEN\CAFFEINE\CODEINE [Concomitant]
     Active Substance: ACETAMINOPHEN\CAFFEINE\CODEINE
     Dosage: UNK UNK, FOUR TIMES/DAY
     Route: 065
  196. ACETAMINOPHEN\CAFFEINE\CODEINE [Concomitant]
     Active Substance: ACETAMINOPHEN\CAFFEINE\CODEINE
     Dosage: UNK UNK, FOUR TIMES/DAY
     Route: 065
  197. ACETAMINOPHEN\CAFFEINE\CODEINE [Concomitant]
     Active Substance: ACETAMINOPHEN\CAFFEINE\CODEINE
     Dosage: UNK UNK, FOUR TIMES/DAY
     Route: 065
  198. ACETAMINOPHEN\CAFFEINE\CODEINE [Concomitant]
     Active Substance: ACETAMINOPHEN\CAFFEINE\CODEINE
     Dosage: UNK UNK, FOUR TIMES/DAY
     Route: 065
  199. ACETAMINOPHEN\CAFFEINE\CODEINE [Concomitant]
     Active Substance: ACETAMINOPHEN\CAFFEINE\CODEINE
     Dosage: UNK UNK, FOUR TIMES/DAY
     Route: 065
  200. ACETAMINOPHEN\CAFFEINE\CODEINE [Concomitant]
     Active Substance: ACETAMINOPHEN\CAFFEINE\CODEINE
     Dosage: UNK UNK, FOUR TIMES/DAY
     Route: 065
  201. ACETAMINOPHEN\CAFFEINE\CODEINE [Concomitant]
     Active Substance: ACETAMINOPHEN\CAFFEINE\CODEINE
     Dosage: UNK UNK, FOUR TIMES/DAY
     Route: 065
  202. ACETAMINOPHEN\CAFFEINE\CODEINE [Concomitant]
     Active Substance: ACETAMINOPHEN\CAFFEINE\CODEINE
     Dosage: UNK UNK, FOUR TIMES/DAY
     Route: 065
  203. ACETAMINOPHEN\CAFFEINE\CODEINE [Concomitant]
     Active Substance: ACETAMINOPHEN\CAFFEINE\CODEINE
     Dosage: UNK UNK, FOUR TIMES/DAY
     Route: 065
  204. ACETAMINOPHEN\CAFFEINE\CODEINE [Concomitant]
     Active Substance: ACETAMINOPHEN\CAFFEINE\CODEINE
     Dosage: UNK UNK, FOUR TIMES/DAY
     Route: 065
  205. ACETAMINOPHEN\CAFFEINE\CODEINE [Concomitant]
     Active Substance: ACETAMINOPHEN\CAFFEINE\CODEINE
     Dosage: UNK UNK, FOUR TIMES/DAY
     Route: 065
  206. ACETAMINOPHEN\CAFFEINE\CODEINE [Concomitant]
     Active Substance: ACETAMINOPHEN\CAFFEINE\CODEINE
     Dosage: UNK UNK, FOUR TIMES/DAY
     Route: 065
  207. ACETAMINOPHEN\CAFFEINE\CODEINE [Concomitant]
     Active Substance: ACETAMINOPHEN\CAFFEINE\CODEINE
     Dosage: UNK UNK, FOUR TIMES/DAY
     Route: 065
  208. ACETAMINOPHEN\CAFFEINE\CODEINE [Concomitant]
     Active Substance: ACETAMINOPHEN\CAFFEINE\CODEINE
     Dosage: UNK UNK, FOUR TIMES/DAY
     Route: 065
  209. ACETAMINOPHEN\CAFFEINE\CODEINE [Concomitant]
     Active Substance: ACETAMINOPHEN\CAFFEINE\CODEINE
     Dosage: UNK UNK, FOUR TIMES/DAY
     Route: 065
  210. ACETAMINOPHEN\CAFFEINE\CODEINE [Concomitant]
     Active Substance: ACETAMINOPHEN\CAFFEINE\CODEINE
     Dosage: UNK UNK, FOUR TIMES/DAY
     Route: 065
  211. ACETAMINOPHEN\CAFFEINE\CODEINE [Concomitant]
     Active Substance: ACETAMINOPHEN\CAFFEINE\CODEINE
     Dosage: UNK UNK, FOUR TIMES/DAY
     Route: 065
  212. ACETAMINOPHEN\CAFFEINE\CODEINE [Concomitant]
     Active Substance: ACETAMINOPHEN\CAFFEINE\CODEINE
     Dosage: UNK UNK, FOUR TIMES/DAY
     Route: 065
  213. ACETAMINOPHEN\CAFFEINE\CODEINE [Concomitant]
     Active Substance: ACETAMINOPHEN\CAFFEINE\CODEINE
     Dosage: UNK UNK, FOUR TIMES/DAY
     Route: 065
  214. ACETAMINOPHEN\CAFFEINE\CODEINE [Concomitant]
     Active Substance: ACETAMINOPHEN\CAFFEINE\CODEINE
     Dosage: UNK UNK, FOUR TIMES/DAY
     Route: 065
  215. ACETAMINOPHEN\CAFFEINE\CODEINE [Concomitant]
     Active Substance: ACETAMINOPHEN\CAFFEINE\CODEINE
     Dosage: UNK UNK, FOUR TIMES/DAY
     Route: 065
  216. ACETAMINOPHEN\CAFFEINE\CODEINE [Concomitant]
     Active Substance: ACETAMINOPHEN\CAFFEINE\CODEINE
     Dosage: UNK UNK, FOUR TIMES/DAY
     Route: 065
  217. ACETAMINOPHEN\CAFFEINE\CODEINE [Concomitant]
     Active Substance: ACETAMINOPHEN\CAFFEINE\CODEINE
     Dosage: UNK UNK, FOUR TIMES/DAY
     Route: 065
  218. ACETAMINOPHEN\CAFFEINE\CODEINE [Concomitant]
     Active Substance: ACETAMINOPHEN\CAFFEINE\CODEINE
     Dosage: UNK UNK, FOUR TIMES/DAY
     Route: 065
  219. ACETAMINOPHEN\CAFFEINE\CODEINE [Concomitant]
     Active Substance: ACETAMINOPHEN\CAFFEINE\CODEINE
     Dosage: UNK UNK, FOUR TIMES/DAY
     Route: 065
  220. ACETAMINOPHEN\CAFFEINE\CODEINE [Concomitant]
     Active Substance: ACETAMINOPHEN\CAFFEINE\CODEINE
     Dosage: UNK UNK, FOUR TIMES/DAY
     Route: 065
  221. ACETAMINOPHEN\CAFFEINE\CODEINE [Concomitant]
     Active Substance: ACETAMINOPHEN\CAFFEINE\CODEINE
     Dosage: UNK UNK, FOUR TIMES/DAY
     Route: 065
  222. ACETAMINOPHEN\CAFFEINE\CODEINE [Concomitant]
     Active Substance: ACETAMINOPHEN\CAFFEINE\CODEINE
     Dosage: UNK UNK, FOUR TIMES/DAY
     Route: 065
  223. ACETAMINOPHEN\CAFFEINE\CODEINE [Concomitant]
     Active Substance: ACETAMINOPHEN\CAFFEINE\CODEINE
     Dosage: UNK UNK, FOUR TIMES/DAY
     Route: 065
  224. MACROBID [Concomitant]
     Active Substance: NITROFURANTOIN\NITROFURANTOIN MONOHYDRATE
     Indication: Product used for unknown indication
     Dosage: 1 DOSAGE FORM, TWO TIMES A DAY
     Route: 065
  225. MACROBID [Concomitant]
     Active Substance: NITROFURANTOIN\NITROFURANTOIN MONOHYDRATE
     Route: 065
  226. METOCLOPRAMIDE [Concomitant]
     Active Substance: METOCLOPRAMIDE
     Indication: Product used for unknown indication
     Dosage: 1 DOSAGE FORM, EVERY FOUR HOUR
     Route: 065
  227. METOCLOPRAMIDE [Concomitant]
     Active Substance: METOCLOPRAMIDE
     Route: 065
  228. METOCLOPRAMIDE [Concomitant]
     Active Substance: METOCLOPRAMIDE
     Dosage: 1 DOSAGE FORM, ONCE A DAY
     Route: 065
  229. METOCLOPRAMIDE [Concomitant]
     Active Substance: METOCLOPRAMIDE
     Route: 065
  230. POLYETHYLENE GLYCOLS [Concomitant]
     Active Substance: POLYETHYLENE GLYCOLS
     Indication: Product used for unknown indication
     Route: 065
  231. METRONIDAZOLE [Concomitant]
     Active Substance: METRONIDAZOLE
     Indication: Product used for unknown indication
     Route: 065
  232. MORPHINE SULFATE [Concomitant]
     Active Substance: MORPHINE SULFATE
     Indication: Product used for unknown indication
     Dosage: 1 DOSAGE FORM, ONCE A DAY
     Route: 065
  233. MORPHINE SULFATE [Concomitant]
     Active Substance: MORPHINE SULFATE
     Dosage: 1 DOSAGE FORM, ONCE A DAY
     Route: 065
  234. MORPHINE SULFATE [Concomitant]
     Active Substance: MORPHINE SULFATE
     Dosage: 1 DOSAGE FORM, ONCE A DAY
     Route: 065
  235. MORPHINE SULFATE [Concomitant]
     Active Substance: MORPHINE SULFATE
     Dosage: 1 DOSAGE FORM, ONCE A DAY
     Route: 065
  236. MORPHINE SULFATE [Concomitant]
     Active Substance: MORPHINE SULFATE
     Dosage: 1 DOSAGE FORM, ONCE A DAY
     Route: 065
  237. MORPHINE SULFATE [Concomitant]
     Active Substance: MORPHINE SULFATE
     Dosage: 1 DOSAGE FORM, ONCE A DAY
     Route: 065
  238. MORPHINE SULFATE [Concomitant]
     Active Substance: MORPHINE SULFATE
     Dosage: 1 DOSAGE FORM, ONCE A DAY
     Route: 065
  239. MORPHINE SULFATE [Concomitant]
     Active Substance: MORPHINE SULFATE
     Dosage: 1 DOSAGE FORM, ONCE A DAY
     Route: 065
  240. MORPHINE SULFATE [Concomitant]
     Active Substance: MORPHINE SULFATE
     Dosage: 1 DOSAGE FORM, ONCE A DAY
     Route: 065
  241. MORPHINE SULFATE [Concomitant]
     Active Substance: MORPHINE SULFATE
     Dosage: 1 DOSAGE FORM, ONCE A DAY
     Route: 065
  242. NAPROXEN [Concomitant]
     Active Substance: NAPROXEN
     Indication: Product used for unknown indication
     Dosage: 1 DOSAGE FORM, TWO TIMES A DAY
     Route: 065
  243. NASONEX [Concomitant]
     Active Substance: MOMETASONE FUROATE
     Indication: Product used for unknown indication
     Dosage: 2 DOSAGE FORM, TWO TIMES A DAY
  244. NITROFURANTOIN [Concomitant]
     Active Substance: NITROFURANTOIN
     Indication: Product used for unknown indication
     Route: 065
  245. OSELTAMIVIR [Concomitant]
     Active Substance: OSELTAMIVIR
     Indication: Product used for unknown indication
     Dosage: 1 DOSAGE FORM, TWO TIMES A DAY
     Route: 065
  246. PANTOPRAZOLE SODIUM [Concomitant]
     Active Substance: PANTOPRAZOLE SODIUM
     Indication: Product used for unknown indication
     Dosage: 1 DOSAGE FORM, TWO TIMES A DAY
     Route: 065
  247. ALBUTEROL [Concomitant]
     Active Substance: ALBUTEROL
     Indication: Product used for unknown indication
     Route: 065
  248. Statex [Concomitant]
     Indication: Product used for unknown indication
     Dosage: 1 DOSAGE FORM, ONCE A DAY
     Route: 065
  249. Statex [Concomitant]
     Route: 065
  250. SULFATRIM [Concomitant]
     Active Substance: SULFAMETHOXAZOLE\TRIMETHOPRIM
     Indication: Product used for unknown indication
     Dosage: 1 DOSAGE FORM, TWO TIMES A DAY
     Route: 065
  251. SULFATRIM [Concomitant]
     Active Substance: SULFAMETHOXAZOLE\TRIMETHOPRIM
     Indication: Product used for unknown indication
     Dosage: 2 DOSAGE FORM, TWO TIMES A DAY
     Route: 065
  252. SULFATRIM [Concomitant]
     Active Substance: SULFAMETHOXAZOLE\TRIMETHOPRIM
     Dosage: 2 DOSAGE FORM, TWO TIMES A DAY
     Route: 065
  253. SUMATRIPTAN SUCCINATE [Concomitant]
     Active Substance: SUMATRIPTAN SUCCINATE
     Indication: Product used for unknown indication
     Route: 065
  254. ACETAMINOPHEN\TRAMADOL [Concomitant]
     Active Substance: ACETAMINOPHEN\TRAMADOL
     Indication: Product used for unknown indication
     Dosage: UNK, FOUR TIMES/DAY
     Route: 065
  255. VENLAFAXINE HYDROCHLORIDE [Concomitant]
     Active Substance: VENLAFAXINE HYDROCHLORIDE
     Indication: Product used for unknown indication
     Route: 065
  256. VITAMIN B1 [Concomitant]
     Active Substance: THIAMINE HYDROCHLORIDE
     Indication: Product used for unknown indication
     Route: 065
  257. VITAMIN B12 [Concomitant]
     Active Substance: CYANOCOBALAMIN
     Indication: Product used for unknown indication
     Route: 065
  258. ACETAMINOPHEN\CODEINE PHOSPHATE [Concomitant]
     Active Substance: ACETAMINOPHEN\CODEINE PHOSPHATE
     Indication: Product used for unknown indication
     Route: 065

REACTIONS (11)
  - Angioedema [Recovered/Resolved]
  - Dysphonia [Recovered/Resolved]
  - Hypersensitivity [Recovered/Resolved]
  - Headache [Recovered/Resolved]
  - Swelling face [Recovered/Resolved]
  - Swollen tongue [Recovered/Resolved]
  - Drug intolerance [Recovered/Resolved]
  - Product use in unapproved indication [Recovered/Resolved]
  - Drug ineffective [Recovered/Resolved]
  - Drug ineffective for unapproved indication [Recovered/Resolved]
  - Off label use [Recovered/Resolved]
